FAERS Safety Report 4432883-3 (Version None)
Quarter: 2004Q3

REPORT INFORMATION
  Report Type: 
  Country: None (occurrence: None)
  Receive Date: 20040823
  Receipt Date: 20040810
  Transmission Date: 20050211
  Serious: Yes (Hospitalization)
  Sender: FDA-Public Use
  Company Number: CIP04001774

PATIENT
  Sex: Female

DRUGS (15)
  1. MACRODANTIN [Suspect]
     Dosage: 100 MG, DAILY, ORAL
     Route: 048
  2. ALLOPURINOL [Concomitant]
  3. CANESTEN [Concomitant]
  4. CODEINE PHOSPHATE [Concomitant]
  5. COLOXYL (DOCUSATE SODIUM) [Concomitant]
  6. DIAMICRON (GLICLAZIDE) [Concomitant]
  7. VALPROATE SODIUM [Concomitant]
  8. LANOXIN [Concomitant]
  9. LIPIROT (ATORVASTATIN) [Concomitant]
  10. METFORMIN HCL [Concomitant]
  11. PANAMAX [Concomitant]
  12. SPIRONOLACTONE [Concomitant]
  13. URAL (CITRIC ACID, SODIUM BICARBONATE, SODIUM CITRATE, TARTARIC ACID) [Concomitant]
  14. WARFARIN SODIUM [Concomitant]
  15. DIRTROPAN /SCH/(OXYBUTYNIN HYDROCHLORIDE) [Concomitant]

REACTIONS (4)
  - ABASIA [None]
  - PHARYNGOLARYNGEAL PAIN [None]
  - PYREXIA [None]
  - RASH [None]
